FAERS Safety Report 26085052 (Version 1)
Quarter: 2025Q4

REPORT INFORMATION
  Report Type: Spontaneous
  Country: CN (occurrence: CN)
  Receive Date: 20251125
  Receipt Date: 20251125
  Transmission Date: 20260118
  Serious: Yes (Disabling, Other)
  Sender: BEIGENE
  Company Number: CN-BEONE MEDICINES-BGN-2025-020438

PATIENT
  Age: 76 Year
  Sex: Male
  Weight: 59.5 kg

DRUGS (8)
  1. TISLELIZUMAB [Suspect]
     Active Substance: TISLELIZUMAB
     Indication: Lung neoplasm malignant
     Dosage: 20 MILLILITER
     Dates: start: 20251103, end: 20251103
  2. TISLELIZUMAB [Suspect]
     Active Substance: TISLELIZUMAB
     Dosage: 20 MILLILITER
     Route: 041
     Dates: start: 20251103, end: 20251103
  3. TISLELIZUMAB [Suspect]
     Active Substance: TISLELIZUMAB
     Dosage: 20 MILLILITER
     Route: 041
     Dates: start: 20251103, end: 20251103
  4. TISLELIZUMAB [Suspect]
     Active Substance: TISLELIZUMAB
     Dosage: 20 MILLILITER
     Dates: start: 20251103, end: 20251103
  5. ETOPOSIDE [Suspect]
     Active Substance: ETOPOSIDE
     Indication: Lung neoplasm malignant
     Dosage: 0.1 GRAM, QD
     Route: 041
     Dates: start: 20251102, end: 20251106
  6. ETOPOSIDE [Suspect]
     Active Substance: ETOPOSIDE
     Dosage: 0.1 GRAM, QD
     Dates: start: 20251102, end: 20251106
  7. CISPLATIN [Suspect]
     Active Substance: CISPLATIN
     Indication: Lung neoplasm malignant
     Dosage: 20 MILLIGRAM, QD
     Route: 041
     Dates: start: 20251102, end: 20251106
  8. CISPLATIN [Suspect]
     Active Substance: CISPLATIN
     Dosage: 20 MILLIGRAM, QD
     Dates: start: 20251102, end: 20251106

REACTIONS (1)
  - Myelosuppression [Recovering/Resolving]

NARRATIVE: CASE EVENT DATE: 20251108
